FAERS Safety Report 24227270 (Version 3)
Quarter: 2024Q3

REPORT INFORMATION
  Report Type: Spontaneous
  Country: CN (occurrence: CN)
  Receive Date: 20240820
  Receipt Date: 20240829
  Transmission Date: 20241017
  Serious: Yes (Other)
  Sender: PFIZER
  Company Number: CN-PFIZER INC-PV202400107497

PATIENT
  Age: 11 Month
  Sex: Female

DRUGS (9)
  1. TIGECYCLINE [Suspect]
     Active Substance: TIGECYCLINE
     Indication: Pneumonia
     Dosage: UNK
     Dates: start: 20230905, end: 20230913
  2. TIGECYCLINE [Suspect]
     Active Substance: TIGECYCLINE
     Indication: Pleural effusion
  3. TIGECYCLINE [Suspect]
     Active Substance: TIGECYCLINE
     Indication: Anti-infective therapy
  4. CEFEPIME [Concomitant]
     Active Substance: CEFEPIME HYDROCHLORIDE
     Indication: Pneumonia
     Dosage: UNK
     Dates: start: 20230905, end: 20230913
  5. CEFEPIME [Concomitant]
     Active Substance: CEFEPIME HYDROCHLORIDE
     Indication: Anti-infective therapy
  6. CEFEPIME [Concomitant]
     Active Substance: CEFEPIME HYDROCHLORIDE
     Indication: Pleural effusion
  7. FLUCONAZOLE [Concomitant]
     Active Substance: FLUCONAZOLE
     Indication: Pneumonia
     Dosage: UNK
     Dates: start: 20230905, end: 20230913
  8. FLUCONAZOLE [Concomitant]
     Active Substance: FLUCONAZOLE
     Indication: Pleural effusion
  9. FLUCONAZOLE [Concomitant]
     Active Substance: FLUCONAZOLE
     Indication: Anti-infective therapy

REACTIONS (2)
  - Haemolytic anaemia [Recovering/Resolving]
  - Off label use [Unknown]

NARRATIVE: CASE EVENT DATE: 20230901
